FAERS Safety Report 13934626 (Version 4)
Quarter: 2018Q1

REPORT INFORMATION
  Report Type: Report from Study
  Country: PT (occurrence: PT)
  Receive Date: 20170905
  Receipt Date: 20180327
  Transmission Date: 20180508
  Serious: Yes (Other)
  Sender: FDA-Public Use
  Company Number: PT-ROCHE-1983641

PATIENT
  Sex: Female
  Weight: 64 kg

DRUGS (5)
  1. SIMVASTATIN. [Concomitant]
     Active Substance: SIMVASTATIN
     Indication: BLOOD CHOLESTEROL
     Dosage: 20 MG ID
     Route: 048
  2. COTELLIC [Suspect]
     Active Substance: COBIMETINIB
     Indication: MALIGNANT MELANOMA
     Dosage: 60 MG ID
     Route: 048
     Dates: start: 20170329, end: 20170506
  3. TELMISARTAN PLUS [Concomitant]
     Indication: HYPERTENSION
     Dosage: 40+12.5MG ID
     Route: 048
  4. ZELBORAF [Suspect]
     Active Substance: VEMURAFENIB
     Indication: MALIGNANT MELANOMA
     Dosage: 960MG BID
     Route: 048
     Dates: start: 20170329, end: 20170506
  5. PANTOPRAZOLE [Concomitant]
     Active Substance: PANTOPRAZOLE
     Indication: GASTRITIS
     Dosage: 20MG ID
     Route: 048

REACTIONS (3)
  - Toxic skin eruption [Recovered/Resolved]
  - Disease progression [Unknown]
  - Drug ineffective [Unknown]

NARRATIVE: CASE EVENT DATE: 20170415
